FAERS Safety Report 22182139 (Version 1)
Quarter: 2023Q2

REPORT INFORMATION
  Report Type: Spontaneous
  Country: US (occurrence: None)
  Receive Date: 20230405
  Receipt Date: 20230405
  Transmission Date: 20230722
  Serious: Yes (Hospitalization)
  Sender: FDA-Public Use
  Company Number: None

PATIENT
  Age: 70 Year
  Sex: Female
  Weight: 63.5 kg

DRUGS (5)
  1. KEYTRUDA [Suspect]
     Active Substance: PEMBROLIZUMAB
     Indication: Breast cancer
     Route: 042
     Dates: start: 202206, end: 202301
  2. TYLENOL [Concomitant]
     Active Substance: ACETAMINOPHEN
  3. IBUPROFEN [Concomitant]
     Active Substance: IBUPROFEN
  4. GABAPENTIN [Concomitant]
     Active Substance: GABAPENTIN
  5. PROCHLORPERAZINE MALEATE [Concomitant]
     Active Substance: PROCHLORPERAZINE MALEATE

REACTIONS (11)
  - Application site reaction [None]
  - Chest pain [None]
  - Musculoskeletal pain [None]
  - Back pain [None]
  - Nausea [None]
  - Cough [None]
  - Vomiting [None]
  - Decreased appetite [None]
  - Fatigue [None]
  - Asthenia [None]
  - General physical health deterioration [None]

NARRATIVE: CASE EVENT DATE: 20230110
